FAERS Safety Report 10770121 (Version 1)
Quarter: 2015Q1

REPORT INFORMATION
  Report Type: Spontaneous
  Country: NO (occurrence: NO)
  Receive Date: 20150206
  Receipt Date: 20150206
  Transmission Date: 20150721
  Serious: Yes (Other)
  Sender: FDA-Public Use
  Company Number: NO-ASTRAZENECA-2015SE09133

PATIENT
  Age: 67 Year
  Sex: Female

DRUGS (8)
  1. THIOPENTAL [Suspect]
     Active Substance: THIOPENTAL
     Route: 065
  2. DESFLURANE. [Suspect]
     Active Substance: DESFLURANE
     Route: 065
  3. REMIFENTANIL [Suspect]
     Active Substance: REMIFENTANIL
     Route: 065
  4. PHENYLEPHRINE [Suspect]
     Active Substance: PHENYLEPHRINE\PHENYLEPHRINE HYDROCHLORIDE
     Route: 065
  5. CISATRACURIUM [Suspect]
     Active Substance: CISATRACURIUM
     Route: 065
  6. PROPOFOL. [Suspect]
     Active Substance: PROPOFOL
     Route: 042
  7. FENTANYL. [Suspect]
     Active Substance: FENTANYL
     Route: 065
  8. KEFLIN [Suspect]
     Active Substance: CEPHALOTHIN SODIUM
     Route: 065

REACTIONS (3)
  - Throat irritation [Recovered/Resolved]
  - Hypertension [Recovered/Resolved]
  - Urticaria [Recovered/Resolved]
